FAERS Safety Report 9760193 (Version 1)
Quarter: 2013Q4

REPORT INFORMATION
  Report Type: Spontaneous
  Country: TN (occurrence: None)
  Receive Date: 20131212
  Receipt Date: 20131212
  Transmission Date: 20140711
  Serious: Yes (Other)
  Sender: FDA-Public Use
  Company Number: 2013P1021818

PATIENT
  Age: 42 Year
  Sex: Male

DRUGS (4)
  1. RIFAMPIN [Suspect]
     Indication: TUBERCULOSIS
     Dosage: ;QD;
  2. PYRAZINAMIDE [Suspect]
     Indication: TUBERCULOSIS
  3. ETHAMBUTOL [Suspect]
     Indication: TUBERCULOSIS
  4. ISONIAZID [Suspect]
     Indication: TUBERCULOSIS

REACTIONS (3)
  - Renal failure acute [None]
  - Chronic allograft nephropathy [None]
  - Renal transplant failure [None]
